FAERS Safety Report 7769664-9 (Version None)
Quarter: 2011Q3

REPORT INFORMATION
  Report Type: 
  Country: None (occurrence: None)
  Receive Date: 20110922
  Receipt Date: 20110911
  Transmission Date: 20111222
  Serious: Yes (Other)
  Sender: FDA-Public Use
  Company Number: DE-ROCHE-803065

PATIENT
  Age: 64 Year
  Sex: Male

DRUGS (5)
  1. AVASTIN [Suspect]
     Dosage: 6 CYCLES WERE GIVEN
     Route: 065
     Dates: start: 20110101, end: 20110301
  2. CHEMOTHERAPY [Concomitant]
     Indication: HEPATIC STEATOSIS
     Dosage: DURATION: 6 - 8 WEEKS POST-CHEMOTHERAPY
     Route: 065
     Dates: start: 20100901
  3. AVASTIN [Suspect]
     Dosage: 6 CYCLES WERE GIVEN
     Route: 065
     Dates: start: 20100601, end: 20100901
  4. FOLFIRI REGIMEN [Suspect]
     Dosage: 6 CYCLES WERE GIVEN
     Route: 065
     Dates: start: 20110101, end: 20110301
  5. FOLFIRI REGIMEN [Suspect]
     Dosage: 6 CYCLES WERE GIVEN
     Route: 065
     Dates: start: 20100601, end: 20100901

REACTIONS (6)
  - DIARRHOEA [None]
  - HYPERTENSION [None]
  - TRANSAMINASES INCREASED [None]
  - HEPATIC LESION [None]
  - ANAEMIA [None]
  - NAUSEA [None]
